FAERS Safety Report 6287146-0 (Version None)
Quarter: 2009Q3

REPORT INFORMATION
  Report Type: 
  Country: None (occurrence: None)
  Receive Date: 20090728
  Receipt Date: 20090720
  Transmission Date: 20100115
  Serious: Yes (Other)
  Sender: FDA-Public Use
  Company Number: US-B.I. PHARMACEUTICALS,INC./RIDGEFIELD-2008-BP-08445BP

PATIENT
  Sex: Female
  Weight: 74 kg

DRUGS (5)
  1. MIRAPEX [Suspect]
     Indication: RESTLESS LEGS SYNDROME
     Dates: start: 20060101, end: 20070201
  2. LYRICA [Suspect]
     Indication: FIBROMYALGIA
     Dosage: AT A LOW DOSE
     Dates: start: 20060101, end: 20070201
  3. CYMBALTA [Concomitant]
  4. HYDROCODONE [Concomitant]
     Indication: BREAKTHROUGH PAIN
  5. ULTRAM [Concomitant]
     Indication: BREAKTHROUGH PAIN

REACTIONS (5)
  - GAIT DISTURBANCE [None]
  - INSOMNIA [None]
  - OEDEMA PERIPHERAL [None]
  - SWELLING [None]
  - WEIGHT INCREASED [None]
